FAERS Safety Report 7789014-1 (Version None)
Quarter: 2011Q3

REPORT INFORMATION
  Report Type: 
  Country: None (occurrence: None)
  Receive Date: 20110930
  Receipt Date: 20110929
  Transmission Date: 20111222
  Serious: Yes (Death, Hospitalization, Other)
  Sender: FDA-Public Use
  Company Number: PHHY2009CA40918

PATIENT
  Sex: Male

DRUGS (1)
  1. SANDOSTATIN LAR [Suspect]
     Indication: ACROMEGALY
     Dosage: 30 MG, QMO
     Route: 030
     Dates: start: 19980102, end: 20110919

REACTIONS (11)
  - CARDIAC FAILURE CONGESTIVE [None]
  - SPINAL FRACTURE [None]
  - OEDEMA PERIPHERAL [None]
  - SKIN LESION [None]
  - CARDIAC VALVE DISEASE [None]
  - FALL [None]
  - OEDEMA [None]
  - MUSCULAR WEAKNESS [None]
  - ARTHRALGIA [None]
  - DEATH [None]
  - HAEMORRHAGE [None]
